FAERS Safety Report 7304665-6 (Version None)
Quarter: 2011Q1

REPORT INFORMATION
  Report Type: 
  Country: None (occurrence: None)
  Receive Date: 20110222
  Receipt Date: 20110211
  Transmission Date: 20110831
  Serious: Yes (Hospitalization)
  Sender: FDA-Public Use
  Company Number: BE-BAYER-201038095GPV

PATIENT
  Sex: Male
  Weight: 62 kg

DRUGS (5)
  1. NEXAVAR [Suspect]
     Dosage: 800 MG (DAILY DOSE), QD, ORAL
     Route: 048
     Dates: start: 20100721, end: 20100810
  2. NEXAVAR [Suspect]
     Dosage: 400 MG (DAILY DOSE), QD, ORAL
     Route: 048
     Dates: start: 20100811
  3. BUSCOPAN [Concomitant]
     Indication: ABDOMINAL PAIN
  4. NEXAVAR [Suspect]
     Dosage: 200 MG, UNK
  5. ZANTAC [Concomitant]
     Indication: DYSPEPSIA
     Dates: start: 20100701

REACTIONS (16)
  - NAUSEA [None]
  - FATIGUE [None]
  - MUSCLE SPASMS [None]
  - DECREASED APPETITE [None]
  - WEIGHT DECREASED [None]
  - HYPOTENSION [None]
  - DIARRHOEA [None]
  - NASOPHARYNGITIS [None]
  - ABDOMINAL PAIN [None]
  - ASCITES [None]
  - DYSPEPSIA [None]
  - EPISTAXIS [None]
  - MALAISE [None]
  - TACHYCARDIA [None]
  - VERTIGO [None]
  - HYPERHIDROSIS [None]
